FAERS Safety Report 20416097 (Version 1)
Quarter: 2022Q1

REPORT INFORMATION
  Report Type: Spontaneous
  Country: US (occurrence: US)
  Receive Date: 20220202
  Receipt Date: 20220202
  Transmission Date: 20220423
  Serious: No
  Sender: FDA-Public Use
  Company Number: US-LANNETT COMPANY, INC.-US-2021LAN000236

PATIENT
  Sex: Female

DRUGS (1)
  1. BACLOFEN [Suspect]
     Active Substance: BACLOFEN
     Indication: Fibromyalgia
     Dosage: 10 MG, TID
     Route: 048

REACTIONS (2)
  - Therapeutic product effective for unapproved indication [Unknown]
  - Off label use [Unknown]
